FAERS Safety Report 5729403-X (Version None)
Quarter: 2008Q2

REPORT INFORMATION
  Report Type: 
  Country: None (occurrence: None)
  Receive Date: 20080506
  Receipt Date: 20080428
  Transmission Date: 20081010
  Serious: Yes (Other)
  Sender: FDA-Public Use
  Company Number: GB-PFIZER INC-2008037630

PATIENT
  Age: 77 Year
  Sex: Male

DRUGS (4)
  1. LIPITOR [Suspect]
  2. WARFARIN SODIUM [Concomitant]
  3. ALL OTHER THERAPEUTIC PRODUCTS [Concomitant]
  4. CARDICOR [Concomitant]

REACTIONS (5)
  - BACK PAIN [None]
  - BLOOD CREATININE INCREASED [None]
  - DEEP VEIN THROMBOSIS [None]
  - MUSCLE ATROPHY [None]
  - MYALGIA [None]
